FAERS Safety Report 8767188 (Version 1)
Quarter: 2012Q4

REPORT INFORMATION
  Report Type: 
  Country: US (occurrence: US)
  Receive Date: 20120904
  Receipt Date: 20120904
  Transmission Date: 20130627
  Serious: Yes (Hospitalization, Congenital Anomaly)
  Sender: FDA-Public Use
  Company Number: US-GLAXOSMITHKLINE-A0932967A

PATIENT
  Age: 0 Year
  Weight: 4.2 kg

DRUGS (1)
  1. PAXIL CR [Suspect]
     Indication: PRODUCT USED FOR UNKNOWN INDICATION
     Route: 064

REACTIONS (3)
  - Supraventricular tachycardia [Unknown]
  - Neonatal tachycardia [Unknown]
  - Foetal exposure during pregnancy [Unknown]
